FAERS Safety Report 7867998-0 (Version None)
Quarter: 2011Q4

REPORT INFORMATION
  Report Type: 
  Country: None (occurrence: None)
  Receive Date: 20111028
  Receipt Date: 20111024
  Transmission Date: 20120403
  Serious: Yes (Other)
  Sender: FDA-Public Use
  Company Number: JP-BAYER-2011-102561

PATIENT

DRUGS (1)
  1. ADALAT [Suspect]
     Dosage: 20 MG, QD
     Route: 048

REACTIONS (1)
  - BLOOD CREATININE INCREASED [None]
